FAERS Safety Report 5582812-4 (Version None)
Quarter: 2007Q4

REPORT INFORMATION
  Report Type: 
  Country: None (occurrence: None)
  Receive Date: 20071231
  Receipt Date: 20071220
  Transmission Date: 20080405
  Serious: Yes (Hospitalization)
  Sender: FDA-Public Use
  Company Number: DAB-2007-00023

PATIENT
  Age: 42 Year
  Sex: Female

DRUGS (4)
  1. PACLITAXEL 6MG/ML CONCENTRATE FOR SOLUTION FOR INFUSION (PACLITAXEL) [Suspect]
     Indication: BREAST CANCER
     Dosage: INTRAVENOUS
     Route: 042
  2. GRANISETRON  HCL [Suspect]
  3. NEULASTA [Suspect]
  4. CYCLOPHOSPHAMIDE [Concomitant]

REACTIONS (2)
  - BLEPHARITIS [None]
  - DYSPNOEA [None]
